FAERS Safety Report 7209779-7 (Version None)
Quarter: 2011Q1

REPORT INFORMATION
  Report Type: 
  Country: None (occurrence: None)
  Receive Date: 20110104
  Receipt Date: 20101231
  Transmission Date: 20110831
  Serious: Yes (Death)
  Sender: FDA-Public Use
  Company Number: US-ASTRAZENECA-2011SE00072

PATIENT
  Age: 38 Year
  Sex: Male

DRUGS (15)
  1. BETA BLOCKER [Suspect]
     Route: 048
  2. ESZOPICLONE [Suspect]
     Route: 048
  3. CITALOPRAM [Suspect]
     Route: 048
  4. VALPROIC ACID [Suspect]
     Route: 048
  5. ZOLPIDEM [Suspect]
     Route: 048
  6. CYCLOBENZAPRINE [Suspect]
     Route: 048
  7. BENZODIAZEPINE [Suspect]
     Route: 048
  8. PROCHLORPERAZINE [Suspect]
     Route: 048
  9. QUETIAPINE [Suspect]
     Route: 048
  10. PAROXETINE HCL [Suspect]
     Route: 048
  11. ACETAMINOPHEN/DICLORALPHENAZONE/ISOMETHEPTENE [Suspect]
     Route: 048
  12. METHYLERGONOVINE [Suspect]
     Route: 048
  13. VERAPAMIL [Suspect]
     Route: 048
  14. ACETAMINOPHEN [Suspect]
     Route: 048
  15. PHENYTOIN [Suspect]
     Route: 048

REACTIONS (2)
  - COMPLETED SUICIDE [None]
  - TOXICITY TO VARIOUS AGENTS [None]
